FAERS Safety Report 8846047 (Version 1)
Quarter: 2012Q4

REPORT INFORMATION
  Report Type: 
  Country: JP (occurrence: JP)
  Receive Date: 20121017
  Receipt Date: 20121017
  Transmission Date: 20130627
  Serious: Yes (Other)
  Sender: FDA-Public Use
  Company Number: JP-EISAI INC-E2090-02342-SPO-JP

PATIENT
  Age: 70 Year
  Sex: Male

DRUGS (2)
  1. EXCEGRAN [Suspect]
     Indication: EPILEPSY
     Route: 048
  2. SERENACE [Concomitant]

REACTIONS (1)
  - Heat illness [Recovered/Resolved]
